FAERS Safety Report 10600472 (Version 2)
Quarter: 2014Q4

REPORT INFORMATION
  Report Type: Report from Study
  Country: NL (occurrence: NL)
  Receive Date: 20141124
  Receipt Date: 20141124
  Transmission Date: 20150529
  Serious: Yes (Hospitalization, Other)
  Sender: FDA-Public Use
  Company Number: NL-AMGEN-NLDSL2012086724

PATIENT
  Age: 75 Year
  Sex: Male

DRUGS (1)
  1. ARANESP [Suspect]
     Active Substance: DARBEPOETIN ALFA
     Indication: PRODUCT USED FOR UNKNOWN INDICATION
     Dosage: 0.3 ML (200MCG/ML), Q3WK
     Route: 065

REACTIONS (9)
  - Nausea [Recovering/Resolving]
  - Gait disturbance [Unknown]
  - Oedema [Unknown]
  - Asthenia [Unknown]
  - Influenza like illness [Unknown]
  - Diarrhoea [Unknown]
  - Renal impairment [Unknown]
  - Hospice care [Unknown]
  - Herpes zoster [Unknown]
